FAERS Safety Report 8961175 (Version 5)
Quarter: 2018Q1

REPORT INFORMATION
  Report Type: Spontaneous
  Country: JP (occurrence: JP)
  Receive Date: 20121212
  Receipt Date: 20180111
  Transmission Date: 20180509
  Serious: Yes (Hospitalization, Other)
  Sender: FDA-Public Use
  Company Number: JP-GLAXOSMITHKLINE-B0826798A

PATIENT
  Age: 50 Year
  Sex: Female
  Weight: 54 kg

DRUGS (32)
  1. LAMOTRIGINE. [Suspect]
     Active Substance: LAMOTRIGINE
     Dosage: 100 MG, QD
     Route: 048
     Dates: start: 20120718, end: 20120817
  2. ZADITEN [Concomitant]
     Active Substance: KETOTIFEN FUMARATE
     Dosage: 5 ML, PRN
     Dates: start: 20120627, end: 20120804
  3. CEFMETAZON [Concomitant]
     Active Substance: CEFMETAZOLE SODIUM
     Dosage: 2 G, QD
     Dates: start: 20120623, end: 20120627
  4. LACTEC-G [Concomitant]
     Dosage: 500 ML, QD
     Dates: start: 20120603, end: 20120623
  5. LAXOBERON [Concomitant]
     Active Substance: SODIUM PICOSULFATE
     Indication: CONSTIPATION
     Dosage: UNK, PRN
     Dates: start: 20120621, end: 20120705
  6. ISOTONIC SODIUM CHLORIDE SOLUTION [Concomitant]
     Active Substance: SODIUM CHLORIDE
  7. VITAMEDIN [Concomitant]
     Active Substance: CYANOCOBALAMIN\PYRIDOXINE HYDROCHLORIDE\THIAMINE
     Dosage: 1 DF, QD
     Dates: start: 20120611, end: 20120622
  8. LAMOTRIGINE. [Suspect]
     Active Substance: LAMOTRIGINE
     Dosage: 75 MG, QD
     Route: 048
     Dates: start: 20120705, end: 20120717
  9. LAMISIL [Concomitant]
     Active Substance: TERBINAFINE HYDROCHLORIDE
     Dosage: UNK, QD
     Dates: start: 20120710, end: 20120810
  10. LAMOTRIGINE. [Suspect]
     Active Substance: LAMOTRIGINE
     Indication: BIPOLAR I DISORDER
     Dosage: 25 MG, QD
     Route: 048
     Dates: start: 20120611, end: 20120620
  11. MEILAX [Concomitant]
     Active Substance: ETHYL LOFLAZEPATE
     Indication: SLEEP DISORDER
     Dosage: 1 MG, QD
     Dates: start: 20120618, end: 20120828
  12. EVAMYL [Concomitant]
     Active Substance: LORMETAZEPAM
     Indication: INSOMNIA
     Dosage: 2 MG, PRN
     Dates: start: 20120616, end: 20120625
  13. SEROQUEL [Concomitant]
     Active Substance: QUETIAPINE FUMARATE
     Indication: RESTLESSNESS
     Dosage: 150 MG, PRN
     Dates: start: 20120627, end: 20120707
  14. RELAXIN [Concomitant]
     Active Substance: RELAXIN PORCINE
     Dosage: 200 MG, QD
     Dates: start: 20120611
  15. ZANTAC [Concomitant]
     Active Substance: RANITIDINE HYDROCHLORIDE
     Dosage: 1 DF, QD
     Dates: start: 20120604, end: 20120623
  16. LULICON [Concomitant]
     Active Substance: LULICONAZOLE
     Dosage: 70 G, QD
     Dates: start: 20120731, end: 20120810
  17. LAMOTRIGINE. [Suspect]
     Active Substance: LAMOTRIGINE
     Indication: BIPOLAR I DISORDER
     Dosage: 50 MG, QD
     Route: 048
     Dates: start: 20120621, end: 20120704
  18. LIMAS [Concomitant]
     Active Substance: LITHIUM CARBONATE
     Indication: BIPOLAR I DISORDER
     Dosage: 400 MG, BID
  19. B-FLUID [Concomitant]
     Dosage: UNK, QD
     Dates: end: 20120625
  20. PROPOFOL. [Concomitant]
     Active Substance: PROPOFOL
     Dosage: 1 DF, QD
     Dates: start: 20120611
  21. VEEN-F [Concomitant]
     Active Substance: CALCIUM CHLORIDE\MAGNESIUM CHLORIDE\POTASSIUM CHLORIDE\SODIUM ACETATE\SODIUM CHLORIDE
     Dosage: 500 ML, PRN
     Dates: start: 20120611
  22. EPEL [Concomitant]
     Dosage: 50 MG, BID
     Dates: end: 20120613
  23. EPADEL S [Concomitant]
     Active Substance: ICOSAPENT ETHYL
     Dosage: 900 MG, BID
     Dates: end: 20120613
  24. MYSLEE [Concomitant]
     Active Substance: ZOLPIDEM TARTRATE
     Indication: INSOMNIA
     Dosage: 20 MG, PRN
     Dates: start: 20120627, end: 20120707
  25. VOLTAREN [Concomitant]
     Active Substance: DICLOFENAC SODIUM
     Dosage: 125 MG, 1D
     Dates: start: 20120606, end: 20120616
  26. PEMIROC [Concomitant]
     Dosage: 2 DF, QD
     Dates: start: 20120625, end: 20120625
  27. WYPAX [Concomitant]
     Active Substance: LORAZEPAM
     Indication: ANXIETY
     Dosage: UNK UNK, PRN
     Dates: start: 20120627
  28. TOPSYM [Concomitant]
     Dosage: 10 G, QD
     Dates: start: 20120614, end: 20120624
  29. KENEI G [Concomitant]
     Active Substance: GLYCERIN
     Dosage: UNK, PRN
     Dates: start: 20120610, end: 20120918
  30. ARTIFICIAL TEAR MYTEAR [Concomitant]
     Dosage: 5 ML, PRN
     Dates: start: 20120627, end: 20120804
  31. SOLDEM 3A [Concomitant]
     Active Substance: CARBOHYDRATES\POTASSIUM CHLORIDE\SODIUM CHLORIDE\SODIUM LACTATE
     Dosage: UNK, QD
     Dates: start: 20120602, end: 20120628
  32. NOVO HEPARIN [Concomitant]
     Active Substance: HEPARIN SODIUM
     Dosage: UNK, PRN
     Dates: start: 20120624, end: 20120628

REACTIONS (14)
  - Lip erosion [Recovering/Resolving]
  - Erythema [Unknown]
  - Pyrexia [Unknown]
  - Alanine aminotransferase increased [Unknown]
  - Stomatitis [Recovering/Resolving]
  - Conjunctivitis [Unknown]
  - Enanthema [Unknown]
  - Oral mucosal eruption [Unknown]
  - Eosinophil percentage increased [Unknown]
  - Stevens-Johnson syndrome [Unknown]
  - Oculomucocutaneous syndrome [Recovered/Resolved]
  - Dermatitis [Unknown]
  - C-reactive protein increased [Unknown]
  - Rash [Recovering/Resolving]

NARRATIVE: CASE EVENT DATE: 201208
